FAERS Safety Report 8396623-8 (Version None)
Quarter: 2012Q1

REPORT INFORMATION
  Report Type: 
  Country: None (occurrence: None)
  Receive Date: 20120323
  Receipt Date: 20110330
  Transmission Date: 20120608
  Serious: Yes (Other)
  Sender: FDA-Public Use
  Company Number: 163-21880-11040101

PATIENT
  Age: 83 Year
  Sex: Female
  Weight: 59.8748 kg

DRUGS (3)
  1. REVLIMID [Suspect]
     Indication: MYELODYSPLASTIC SYNDROME
     Dosage: 5 MG, 1 IN 1 D, PO    10 MG, 1 IN 1 D, PO
     Route: 048
     Dates: start: 20110328
  2. REVLIMID [Suspect]
     Indication: MYELODYSPLASTIC SYNDROME
     Dosage: 5 MG, 1 IN 1 D, PO    10 MG, 1 IN 1 D, PO
     Route: 048
     Dates: start: 20090801
  3. REVLIMID [Suspect]
     Indication: MYELODYSPLASTIC SYNDROME
     Dosage: 5 MG, 1 IN 1 D, PO    10 MG, 1 IN 1 D, PO
     Route: 048
     Dates: start: 20091101, end: 20100412

REACTIONS (1)
  - FULL BLOOD COUNT ABNORMAL [None]
